FAERS Safety Report 16158154 (Version 5)
Quarter: 2019Q2

REPORT INFORMATION
  Report Type: Report from Study
  Country: None (occurrence: CH)
  Receive Date: 20190404
  Receipt Date: 20190627
  Transmission Date: 20190711
  Serious: Yes (Hospitalization, Other)
  Sender: FDA-Public Use
  Company Number: CH-ABBVIE-19S-151-2686917-00

PATIENT
  Age: 83 Year
  Sex: Male

DRUGS (13)
  1. DUODOPA [Suspect]
     Active Substance: CARBIDOPA\LEVODOPA
     Indication: PARKINSON^S DISEASE
     Route: 050
     Dates: start: 20181031, end: 20181121
  2. DUODOPA [Suspect]
     Active Substance: CARBIDOPA\LEVODOPA
     Dosage: MD 10ML, CRD 4.6 ML/H, CRN 3 ML/H, ED 1ML, 24 H THERAPY
     Route: 050
     Dates: start: 201903, end: 20190326
  3. DUODOPA [Suspect]
     Active Substance: CARBIDOPA\LEVODOPA
     Dosage: MD 10 ML, CRD 4.7 ML/H, CRN 3.3 ML/H, ED1.5 ML, 24 H THERAPY
     Route: 050
     Dates: start: 20190326, end: 2019
  4. DUODOPA [Suspect]
     Active Substance: CARBIDOPA\LEVODOPA
     Dosage: MD 7 ML; CRD 5.1 ML/H UNTIL 12:00,THEN 5.4 ML/H UNTIL 22:00; CRN 3.5 ML/H;24 H THERAPY
     Route: 050
     Dates: start: 20190507
  5. DUODOPA [Suspect]
     Active Substance: CARBIDOPA\LEVODOPA
     Dosage: MD10ML CR4.5 ML/H ED1ML 16 H THERAPY
     Route: 050
     Dates: start: 20181126, end: 20190221
  6. DUODOPA [Suspect]
     Active Substance: CARBIDOPA\LEVODOPA
     Dosage: MD 10 ML, CRD 4.5 ML/H, CRN 2.4 ML/H, ED 1ML 24H THERAPY
     Route: 050
     Dates: start: 20190318, end: 20190319
  7. DUODOPA [Suspect]
     Active Substance: CARBIDOPA\LEVODOPA
     Dosage: MD 10ML, CRD 4.5 ML/H, CRN 2 ML/H, ED 1ML, 24 H THERAPY
     Route: 050
     Dates: start: 20190221
  8. DUODOPA [Suspect]
     Active Substance: CARBIDOPA\LEVODOPA
     Dosage: MD10ML CR 4.6 ML/H ED 1ML 16 H THERAPY
     Route: 050
     Dates: start: 20181121, end: 20190226
  9. DUODOPA [Suspect]
     Active Substance: CARBIDOPA\LEVODOPA
     Dosage: MD 10 ML, CRD 4.5 ML/H, CRN STOPPED, ED 1 ML
     Route: 050
     Dates: start: 20190319, end: 20190319
  10. DUODOPA [Suspect]
     Active Substance: CARBIDOPA\LEVODOPA
     Dosage: MD10 ML, CRD 4.5 ML/H , CRN 2.4 ML/H, ED 1 ML 24H THERAPY
     Route: 050
     Dates: start: 20190319
  11. DUODOPA [Suspect]
     Active Substance: CARBIDOPA\LEVODOPA
     Dosage: MD 10 ML, CRD 4.5 ML/H,ED1 ML 16 H THERAPY
     Route: 050
     Dates: start: 20190221, end: 20190318
  12. DUODOPA [Suspect]
     Active Substance: CARBIDOPA\LEVODOPA
     Dosage: MD 10ML, CR 4.5 ML/H, CRN 2 ML/H, ED1ML.24 H THERAPY
     Route: 050
     Dates: start: 20190221, end: 20190221
  13. DUODOPA [Suspect]
     Active Substance: CARBIDOPA\LEVODOPA
     Dosage: MD 7 ML, CRD 4.6 ML/H, CRN 3.5 ML/H,  24 H THERAPY
     Route: 050
     Dates: start: 2019, end: 2019

REACTIONS (13)
  - Wrong technique in product usage process [Recovered/Resolved]
  - Neuralgia [Recovering/Resolving]
  - Akinesia [Recovered/Resolved]
  - Mobility decreased [Recovering/Resolving]
  - General physical health deterioration [Recovered/Resolved]
  - Therapeutic product effect incomplete [Recovered/Resolved]
  - On and off phenomenon [Recovered/Resolved]
  - Fatigue [Recovered/Resolved]
  - Pneumonia [Recovered/Resolved]
  - Gait disturbance [Unknown]
  - Incorrect dose administered [Recovered/Resolved]
  - Device power source issue [Recovered/Resolved]
  - Drug ineffective [Not Recovered/Not Resolved]

NARRATIVE: CASE EVENT DATE: 20190319
